APPROVED DRUG PRODUCT: KHINDIVI
Active Ingredient: HYDROCORTISONE
Strength: 1MG/ML
Dosage Form/Route: SOLUTION;ORAL
Application: N218980 | Product #001
Applicant: ETON PHARMACEUTICALS INC
Approved: May 28, 2025 | RLD: Yes | RS: Yes | Type: RX

PATENTS:
Patent 12133914 | Expires: Feb 23, 2043
Patent 11904046 | Expires: Feb 23, 2043